FAERS Safety Report 22268158 (Version 1)
Quarter: 2023Q2

REPORT INFORMATION
  Report Type: Spontaneous
  Country: US (occurrence: None)
  Receive Date: 20230427
  Receipt Date: 20230427
  Transmission Date: 20230722
  Serious: Yes (Death)
  Sender: FDA-Public Use
  Company Number: None

PATIENT
  Age: 50 Year
  Sex: Female

DRUGS (1)
  1. REBIF [Suspect]
     Active Substance: INTERFERON BETA-1A
     Dosage: OTHER STRENGTH : 44/0.5 UG/ML;?
     Route: 058

REACTIONS (1)
  - Death [None]

NARRATIVE: CASE EVENT DATE: 20230408
